FAERS Safety Report 11490165 (Version 9)
Quarter: 2015Q4

REPORT INFORMATION
  Report Type: Report from Study
  Country: TW (occurrence: TW)
  Receive Date: 20150910
  Receipt Date: 20151215
  Transmission Date: 20160304
  Serious: Yes (Hospitalization, Other)
  Sender: FDA-Public Use
  Company Number: PHHY2015TW106994

PATIENT
  Age: 48 Year
  Sex: Male
  Weight: 80 kg

DRUGS (18)
  1. DIPHENIDOL [Concomitant]
     Active Substance: DIPHENIDOL
     Indication: PRODUCT USED FOR UNKNOWN INDICATION
     Dosage: 50 MG, UNK
     Route: 048
     Dates: start: 20151124
  2. GILENYA [Suspect]
     Active Substance: FINGOLIMOD HYDROCHLORIDE
     Indication: MULTIPLE SCLEROSIS
     Dosage: 0.5 MG, UNK
     Route: 048
     Dates: start: 20150713, end: 20150904
  3. ACETAMINOPHEN. [Concomitant]
     Active Substance: ACETAMINOPHEN
     Indication: PRODUCT USED FOR UNKNOWN INDICATION
     Dosage: 2000 MG, UNK
     Route: 065
     Dates: start: 20150831, end: 20150902
  4. FURSULTIAMINE [Concomitant]
     Active Substance: FURSULTIAMINE
     Indication: PRODUCT USED FOR UNKNOWN INDICATION
     Dosage: 100 MG, UNK
     Route: 048
     Dates: start: 20151124
  5. METHYLPREDNISOLONE. [Suspect]
     Active Substance: METHYLPREDNISOLONE
     Indication: MUSCULAR WEAKNESS
     Dosage: 500 MG/VIAL, Q12H
     Route: 041
     Dates: start: 20150903
  6. METHYLPREDNISOLONE. [Suspect]
     Active Substance: METHYLPREDNISOLONE
     Dosage: 1000 MG, UNK
     Route: 042
     Dates: start: 20151203, end: 20151205
  7. TOBRADEX [Concomitant]
     Active Substance: DEXAMETHASONE\TOBRAMYCIN
     Indication: CATARACT
     Dosage: HS (3.5 G/TUBE)
     Route: 061
     Dates: start: 20150831, end: 20150906
  8. PREDONINE [Concomitant]
     Active Substance: PREDNISOLONE\PREDNISOLONE ACETATE\PREDNISOLONE SODIUM SUCCINATE
     Indication: DIABETES MELLITUS
     Dosage: 2.5 MG, UNK
     Route: 048
     Dates: start: 20150729
  9. LEVOFLOXACIN. [Concomitant]
     Active Substance: LEVOFLOXACIN
     Indication: CATARACT
     Dosage: 4 GTT, QID
     Route: 061
     Dates: start: 20150831, end: 20150906
  10. TROPICAMIDE. [Concomitant]
     Active Substance: TROPICAMIDE
     Indication: CATARACT
     Dosage: 4 GTT, QID
     Route: 061
     Dates: start: 20150831, end: 20150906
  11. SIBELIUM [Concomitant]
     Active Substance: FLUNARIZINE
     Indication: PRODUCT USED FOR UNKNOWN INDICATION
     Dosage: 10 MG, UNK
     Route: 048
     Dates: start: 20151124
  12. MEXITIL [Concomitant]
     Active Substance: MEXILETINE HYDROCHLORIDE
     Indication: ARRHYTHMIA
     Dosage: 300 MG, UNK
     Route: 048
     Dates: start: 20150806
  13. ACETAZOLAMIDE. [Concomitant]
     Active Substance: ACETAZOLAMIDE
     Indication: PRODUCT USED FOR UNKNOWN INDICATION
     Dosage: 500 MG, UNK
     Route: 065
     Dates: start: 20150831, end: 20150831
  14. GILENYA [Suspect]
     Active Substance: FINGOLIMOD HYDROCHLORIDE
     Dosage: 0.5 MG, UNK
     Route: 048
     Dates: start: 20150907
  15. CEPHALEXIN. [Concomitant]
     Active Substance: CEPHALEXIN
     Indication: PRODUCT USED FOR UNKNOWN INDICATION
     Dosage: 2000 MG, UNK
     Route: 065
     Dates: start: 20150831, end: 20150831
  16. GLUCOPHAGE [Concomitant]
     Active Substance: METFORMIN HYDROCHLORIDE
     Indication: DIABETES MELLITUS
     Dosage: 1500 MG, UNK
     Route: 048
     Dates: start: 20150728
  17. CRESTOR [Concomitant]
     Active Substance: ROSUVASTATIN CALCIUM
     Indication: PRODUCT USED FOR UNKNOWN INDICATION
     Dosage: 10 MG, UNK
     Route: 065
     Dates: start: 20150804
  18. PREDNISOLONE. [Concomitant]
     Active Substance: PREDNISOLONE
     Indication: CATARACT
     Dosage: 6 GTT, Q2H
     Route: 061
     Dates: start: 20150831, end: 20150906

REACTIONS (18)
  - Central nervous system lesion [Unknown]
  - Dysphagia [Recovered/Resolved]
  - Hiccups [Recovered/Resolved]
  - Alanine aminotransferase increased [Unknown]
  - Choking [Recovering/Resolving]
  - Activated partial thromboplastin time prolonged [Unknown]
  - Ataxia [Recovering/Resolving]
  - Muscular weakness [Recovered/Resolved]
  - Dysarthria [Recovering/Resolving]
  - Muscular weakness [Recovered/Resolved]
  - Platelet count decreased [Unknown]
  - Blood glucose increased [Unknown]
  - Gait disturbance [Not Recovered/Not Resolved]
  - Prothrombin time prolonged [Unknown]
  - Neutrophil count increased [Unknown]
  - Monocyte percentage increased [Unknown]
  - Lymphocyte percentage decreased [Unknown]
  - Demyelination [Unknown]

NARRATIVE: CASE EVENT DATE: 20150901
